FAERS Safety Report 5592432-3 (Version None)
Quarter: 2008Q1

REPORT INFORMATION
  Report Type: 
  Country: None (occurrence: None)
  Receive Date: 20080115
  Receipt Date: 20080103
  Transmission Date: 20080703
  Serious: Yes (Other)
  Sender: FDA-Public Use
  Company Number: MY-PFIZER INC-2007096822

PATIENT
  Sex: Female

DRUGS (4)
  1. ZYVOX [Suspect]
     Indication: ENDOCARDITIS
     Route: 048
     Dates: start: 20071029, end: 20071106
  2. FUROSEMIDE [Concomitant]
  3. SPIRONOLACTONE [Concomitant]
  4. PERINDOPRIL ERBUMINE [Concomitant]

REACTIONS (1)
  - HAEMOLYTIC ANAEMIA [None]
